FAERS Safety Report 21313968 (Version 2)
Quarter: 2022Q3

REPORT INFORMATION
  Report Type: Report from Study
  Country: RU (occurrence: RU)
  Receive Date: 20220909
  Receipt Date: 20220913
  Transmission Date: 20221026
  Serious: Yes (Death, Other)
  Sender: FDA-Public Use
  Company Number: RU-NOVARTISPH-NVSC2021RU159455

PATIENT
  Age: 0 Year
  Sex: Female
  Weight: 6.7 kg

DRUGS (8)
  1. ZOLGENSMA [Suspect]
     Active Substance: ONASEMNOGENE ABEPARVOVEC-XIOI
     Indication: Spinal muscular atrophy
     Dosage: 34.9 ML, ONCE/SINGLE (1.1X101 4 VECTOR GENOMES/KG/ADMINISTRATION)
     Route: 041
     Dates: start: 20210304, end: 20210304
  2. PREDNISOLONE [Concomitant]
     Active Substance: PREDNISOLONE
     Indication: Immunosuppressant drug therapy
     Dosage: 7.5 MG, QD
     Route: 065
     Dates: start: 20210303
  3. PREDNISOLONE [Concomitant]
     Active Substance: PREDNISOLONE
     Indication: Hormone replacement therapy
     Dosage: 7.5 MG (MAXIMUM DOSE)
     Route: 065
     Dates: start: 20210611
  4. ASPARCAM [Concomitant]
     Indication: Product used for unknown indication
     Dosage: UNK, BID (? TABLET)
     Route: 048
     Dates: start: 20210303
  5. ALMAGEL [Concomitant]
     Indication: Product used for unknown indication
     Dosage: 1 ML, QID
     Route: 048
     Dates: start: 20210303
  6. VITAMIN D [Concomitant]
     Active Substance: VITAMIN D NOS
     Indication: Product used for unknown indication
     Dosage: 1000 IU
     Route: 065
  7. IBUPROFEN [Concomitant]
     Active Substance: IBUPROFEN
     Indication: Product used for unknown indication
     Dosage: UNK (WHEN NEEDED)
     Route: 065
  8. AQUADETRIM VITAMIN D3 [Concomitant]
     Indication: Product used for unknown indication
     Dosage: UNK
     Route: 048
     Dates: start: 20210302

REACTIONS (9)
  - Pneumonia [Fatal]
  - Rhinorrhoea [Fatal]
  - Dyspnoea [Fatal]
  - Oxygen saturation decreased [Fatal]
  - Pyrexia [Fatal]
  - Hyperthermia [Unknown]
  - Monocytosis [Unknown]
  - Thrombocytopenia [Unknown]
  - Transaminases increased [Unknown]

NARRATIVE: CASE EVENT DATE: 20210306
